FAERS Safety Report 6728297-3 (Version None)
Quarter: 2010Q2

REPORT INFORMATION
  Report Type: 
  Country: None (occurrence: None)
  Receive Date: 20100517
  Receipt Date: 20100505
  Transmission Date: 20101027
  Serious: Yes (Other)
  Sender: FDA-Public Use
  Company Number: GB-GILEAD-2009-0026019

PATIENT
  Sex: Male
  Weight: 98 kg

DRUGS (29)
  1. ATRIPLA [Suspect]
     Indication: HIV INFECTION
     Dates: start: 20080616, end: 20091214
  2. RITONAVIR [Suspect]
     Indication: HIV INFECTION
     Dates: start: 19970218, end: 19970728
  3. RITONAVIR [Suspect]
     Dates: start: 19970729, end: 20000307
  4. RITONAVIR [Suspect]
     Dates: start: 20041001, end: 20050403
  5. RITONAVIR [Suspect]
     Dates: start: 20050404, end: 20050529
  6. RITONAVIR [Suspect]
     Dates: start: 20050530, end: 20080522
  7. RITONAVIR [Suspect]
     Dates: start: 20080523, end: 20080615
  8. RITONAVIR [Suspect]
     Dates: start: 20080616, end: 20091214
  9. RITONAVIR [Suspect]
     Dates: start: 20091215
  10. EFAVIRENZ [Suspect]
     Indication: HIV INFECTION
     Dates: start: 20000308, end: 20010703
  11. EFAVIRENZ [Suspect]
     Dates: start: 20010704, end: 20040930
  12. EFAVIRENZ [Suspect]
     Dates: start: 20041001, end: 20050403
  13. EFAVIRENZ [Suspect]
     Dates: start: 20050404, end: 20050529
  14. EFAVIRENZ [Suspect]
     Dates: start: 20050530, end: 20080522
  15. EFAVIRENZ [Suspect]
     Dates: start: 20080523, end: 20080615
  16. KIVEXA [Suspect]
     Indication: HIV INFECTION
     Dates: start: 20000308, end: 20010703
  17. KIVEXA [Suspect]
     Dates: start: 20010704, end: 20040930
  18. KIVEXA [Suspect]
     Dates: start: 20041001, end: 20050403
  19. KIVEXA [Suspect]
     Dates: start: 20050404, end: 20050529
  20. KIVEXA [Suspect]
     Dates: start: 20050530, end: 20080522
  21. KIVEXA [Suspect]
     Dates: start: 19961105
  22. KALETRA [Suspect]
     Indication: HIV INFECTION
     Dates: start: 20000308, end: 20040930
  23. REYATAZ [Concomitant]
     Indication: HIV INFECTION
     Dates: start: 20041001, end: 20050403
  24. REYATAZ [Concomitant]
     Dates: start: 20050404, end: 20050529
  25. REYATAZ [Concomitant]
     Dates: start: 20050530, end: 20080522
  26. REYATAZ [Concomitant]
     Dates: start: 20080523, end: 20080615
  27. REYATAZ [Concomitant]
     Dates: start: 20080616, end: 20091214
  28. DARUNAVIR [Concomitant]
     Indication: HIV INFECTION
  29. VIREAD [Concomitant]
     Indication: HIV INFECTION
     Dates: start: 20080523, end: 20080615

REACTIONS (3)
  - ABNORMAL DREAMS [None]
  - DIARRHOEA [None]
  - MYOCARDIAL INFARCTION [None]
